FAERS Safety Report 7156996-0 (Version None)
Quarter: 2010Q4

REPORT INFORMATION
  Report Type: 
  Country: None (occurrence: None)
  Receive Date: 20101214
  Receipt Date: 20100125
  Transmission Date: 20110411
  Serious: No
  Sender: FDA-Public Use
  Company Number: US-ASTRAZENECA-2010SE03351

PATIENT
  Sex: Male
  Weight: 78 kg

DRUGS (3)
  1. CRESTOR [Suspect]
     Route: 048
     Dates: start: 20100106
  2. NEXIUM [Concomitant]
  3. AVODART [Concomitant]

REACTIONS (2)
  - ARTHRALGIA [None]
  - INTENTIONAL DRUG MISUSE [None]
